FAERS Safety Report 7049213-3 (Version None)
Quarter: 2010Q4

REPORT INFORMATION
  Report Type: 
  Country: None (occurrence: None)
  Receive Date: 20101018
  Receipt Date: 20101012
  Transmission Date: 20110411
  Serious: Yes (Other)
  Sender: FDA-Public Use
  Company Number: US-ELI_LILLY_AND_COMPANY-US201010001874

PATIENT
  Sex: Female
  Weight: 59.41 kg

DRUGS (12)
  1. CHK-1 INHIBITOR I (LY2603618) [Suspect]
     Indication: NON-SMALL CELL LUNG CANCER METASTATIC
     Dosage: 150 MG/M2, UNK
     Route: 042
     Dates: start: 20100826, end: 20101006
  2. PEMETREXED [Suspect]
     Indication: NON-SMALL CELL LUNG CANCER METASTATIC
     Dosage: 500 MG/M2, UNK
     Route: 042
     Dates: start: 20100825, end: 20101006
  3. FOLIC ACID [Concomitant]
     Indication: PROPHYLAXIS
     Dates: start: 20081001
  4. VITAMIN B-12 [Concomitant]
     Indication: PROPHYLAXIS
     Dates: start: 20100817, end: 20101006
  5. CORTICOSTEROID NOS [Concomitant]
     Indication: PROPHYLAXIS
     Dates: start: 20100824, end: 20101006
  6. AMBIEN [Concomitant]
     Indication: SLEEP DISORDER THERAPY
     Dates: start: 20081001
  7. MULTI-VITAMIN [Concomitant]
     Indication: SUPPLEMENTATION THERAPY
     Dates: start: 20060627
  8. SANCTURA [Concomitant]
     Indication: URINARY INCONTINENCE
     Dates: start: 20100604
  9. WELLBUTRIN [Concomitant]
     Indication: DEPRESSION
     Dates: start: 20060627
  10. NEURONTIN [Concomitant]
     Indication: NEUROPATHY PERIPHERAL
     Dates: start: 20060627
  11. VICODIN [Concomitant]
     Indication: PAIN
     Dates: start: 20100825
  12. RHINOCORT [Concomitant]
     Indication: MULTIPLE ALLERGIES
     Dates: start: 20060627

REACTIONS (1)
  - PULMONARY EMBOLISM [None]
